FAERS Safety Report 6990065-5 (Version None)
Quarter: 2010Q3

REPORT INFORMATION
  Report Type: 
  Country: None (occurrence: None)
  Receive Date: 20100916
  Receipt Date: 20100420
  Transmission Date: 20110219
  Serious: Yes (Other)
  Sender: FDA-Public Use
  Company Number: DE-PFIZER INC-2010027172

PATIENT
  Sex: Female

DRUGS (4)
  1. LYRICA [Suspect]
     Indication: POLYNEUROPATHY IDIOPATHIC PROGRESSIVE
     Dosage: 75 MG, 2X/DAY
     Route: 048
     Dates: start: 20080901
  2. LYRICA [Suspect]
     Indication: MUSCLE SPASMS
     Dosage: UNK
     Route: 048
     Dates: start: 20090515
  3. VALORON ^GOEDECKE^ [Concomitant]
  4. AMITRIPTYLINE [Concomitant]

REACTIONS (2)
  - AUTOIMMUNE DISORDER [None]
  - ORAL LICHEN PLANUS [None]
